FAERS Safety Report 25114080 (Version 1)
Quarter: 2025Q1

REPORT INFORMATION
  Report Type: Spontaneous
  Country: ES (occurrence: ES)
  Receive Date: 20250324
  Receipt Date: 20250324
  Transmission Date: 20250408
  Serious: Yes (Death, Hospitalization, Other)
  Sender: TAIHO ONCOLOGY INC
  Company Number: ES-MMM-Otsuka-SRDBM5X9

PATIENT
  Age: 65 Year
  Sex: Female

DRUGS (1)
  1. INQOVI [Suspect]
     Active Substance: CEDAZURIDINE\DECITABINE
     Indication: Acute myeloid leukaemia
     Route: 048
     Dates: start: 202409, end: 202411

REACTIONS (7)
  - Death [Fatal]
  - Appendicitis [Unknown]
  - Raoultella ornithinolytica infection [Unknown]
  - Febrile neutropenia [Unknown]
  - Skin infection [Unknown]
  - Soft tissue infection [Unknown]
  - Off label use [Unknown]

NARRATIVE: CASE EVENT DATE: 20250214
